FAERS Safety Report 22588303 (Version 1)
Quarter: 2023Q2

REPORT INFORMATION
  Report Type: Spontaneous
  Country: IT (occurrence: IT)
  Receive Date: 20230612
  Receipt Date: 20230612
  Transmission Date: 20230721
  Serious: Yes (Other)
  Sender: FDA-Public Use
  Company Number: IT-MINISAL02-925632

PATIENT
  Age: 66 Year
  Sex: Female

DRUGS (4)
  1. RISEDRONATE SODIUM [Suspect]
     Active Substance: RISEDRONATE SODIUM
     Indication: Osteoporosis
     Dosage: 75 MILLIGRAM, 1 MONTH
     Route: 048
     Dates: start: 2011, end: 2019
  2. RISEDRONATE SODIUM [Suspect]
     Active Substance: RISEDRONATE SODIUM
     Dosage: UNK
     Route: 065
     Dates: start: 2011, end: 2021
  3. BONVIVA [Suspect]
     Active Substance: IBANDRONATE SODIUM
     Indication: Product used for unknown indication
     Dosage: UNK
     Route: 065
     Dates: start: 2011
  4. BONVIVA [Suspect]
     Active Substance: IBANDRONATE SODIUM
     Dosage: 150 MILLIGRAM, 1 MONTH
     Route: 048
     Dates: start: 2019

REACTIONS (1)
  - Osteonecrosis of jaw [Not Recovered/Not Resolved]

NARRATIVE: CASE EVENT DATE: 20230501
